FAERS Safety Report 10005779 (Version 2)
Quarter: 2014Q1

REPORT INFORMATION
  Report Type: Report from Study
  Country: US (occurrence: US)
  Receive Date: 20140313
  Receipt Date: 20140324
  Transmission Date: 20141002
  Serious: Yes (Other)
  Sender: FDA-Public Use
  Company Number: US-ROCHE-1361304

PATIENT
  Age: 49 Year
  Sex: Female

DRUGS (7)
  1. HERCEPTIN [Suspect]
     Indication: BREAST CANCER METASTATIC
     Dosage: 1L DOSE
     Route: 065
  2. PERJETA [Suspect]
     Indication: BREAST CANCER METASTATIC
     Dosage: 1L DOSE
     Route: 065
  3. KADCYLA [Suspect]
     Indication: BREAST CANCER METASTATIC
     Dosage: 2L DOSE
     Route: 065
  4. XELODA [Suspect]
     Indication: BREAST CANCER METASTATIC
     Route: 065
  5. TAXOTERE [Concomitant]
     Dosage: 1L DOSE
     Route: 065
  6. TYKERB [Concomitant]
     Dosage: 2L DOSE
     Route: 065
  7. TAXOL [Concomitant]

REACTIONS (1)
  - Febrile neutropenia [Unknown]
